FAERS Safety Report 19952006 (Version 1)
Quarter: 2021Q4

REPORT INFORMATION
  Report Type: Spontaneous
  Country: DE (occurrence: DE)
  Receive Date: 20211014
  Receipt Date: 20211014
  Transmission Date: 20220303
  Serious: Yes (Hospitalization, Other)
  Sender: FDA-Public Use
  Company Number: DE-AUROBINDO-AUR-APL-2021-033340

PATIENT
  Sex: Male
  Weight: 85 kg

DRUGS (3)
  1. GENTAMICIN [Suspect]
     Active Substance: GENTAMICIN
     Indication: Infection
     Route: 042
  2. FLUCLOXACILLIN SODIUM [Suspect]
     Active Substance: FLUCLOXACILLIN SODIUM
     Indication: Endocarditis bacterial
     Dosage: 2 GRAM, FOUR TIMES/DAY
     Route: 042
     Dates: start: 20210717, end: 20210720
  3. FLUCLOXACILLIN SODIUM [Suspect]
     Active Substance: FLUCLOXACILLIN SODIUM
     Indication: Endocarditis bacterial
     Dosage: 1 GRAM, FOUR TIMES/DAY
     Route: 042
     Dates: start: 20210717, end: 20210720

REACTIONS (5)
  - Renal failure [Not Recovered/Not Resolved]
  - Renal impairment [Not Recovered/Not Resolved]
  - Infusion site pain [Recovered/Resolved]
  - Dizziness [Not Recovered/Not Resolved]
  - Infusion site pruritus [Recovered/Resolved]

NARRATIVE: CASE EVENT DATE: 20210717
